FAERS Safety Report 10582006 (Version 2)
Quarter: 2014Q4

REPORT INFORMATION
  Report Type: Spontaneous
  Country: US (occurrence: US)
  Receive Date: 20141113
  Receipt Date: 20141114
  Transmission Date: 20150529
  Serious: Yes (Other)
  Sender: FDA-Public Use
  Company Number: US-PFIZER INC-2014308334

PATIENT
  Age: 81 Year
  Sex: Male
  Weight: 117 kg

DRUGS (1)
  1. LYRICA [Suspect]
     Active Substance: PREGABALIN
     Indication: BACK PAIN
     Dosage: NO LESS THAN 100 MG EVERY 4 OR AT LEAST EVERY 6 HOURS

REACTIONS (2)
  - Drug ineffective [Unknown]
  - Intervertebral disc degeneration [Unknown]
